FAERS Safety Report 5140075-8 (Version None)
Quarter: 2006Q4

REPORT INFORMATION
  Report Type: 
  Country: None (occurrence: None)
  Receive Date: 20061031
  Receipt Date: 20061018
  Transmission Date: 20070319
  Serious: Yes (Other)
  Sender: FDA-Public Use
  Company Number: PHBS2006JP16342

PATIENT
  Age: 63 Year
  Sex: Female

DRUGS (1)
  1. VOLTAREN [Suspect]
     Indication: PROCEDURAL PAIN
     Route: 054

REACTIONS (1)
  - INTERSTITIAL LUNG DISEASE [None]
